FAERS Safety Report 9752633 (Version 1)
Quarter: 2013Q4

REPORT INFORMATION
  Report Type: Spontaneous
  Country: US (occurrence: US)
  Receive Date: 20131213
  Receipt Date: 20131213
  Transmission Date: 20140711
  Serious: No
  Sender: FDA-Public Use
  Company Number: US-BAYER-2013-152534

PATIENT
  Age: 64 Year
  Sex: Male
  Weight: 74.83 kg

DRUGS (1)
  1. ALEVE CAPLET [Suspect]
     Indication: RHEUMATOID ARTHRITIS
     Dosage: 2 DF, QD
     Route: 048
     Dates: start: 2006

REACTIONS (2)
  - Off label use [None]
  - Incorrect drug administration duration [None]
